FAERS Safety Report 25799599 (Version 1)
Quarter: 2025Q3

REPORT INFORMATION
  Report Type: Spontaneous
  Country: EU (occurrence: EU)
  Receive Date: 20250914
  Receipt Date: 20250914
  Transmission Date: 20251020
  Serious: Yes (Hospitalization, Other)
  Sender: AUROBINDO
  Company Number: EU-AFSSAPS-TO2025001321

PATIENT
  Age: 97 Year
  Sex: Male

DRUGS (6)
  1. OXYCODONE [Suspect]
     Active Substance: OXYCODONE
     Indication: Pain
     Dosage: 10 MILLIGRAM, ONCE A DAY (LP, LONG-TERM INTAKE)
     Route: 048
     Dates: end: 20250808
  2. MIRTAZAPINE [Suspect]
     Active Substance: MIRTAZAPINE
     Indication: Depression
     Dosage: 30 MILLIGRAM, ONCE A DAY (LONG-TERM INTAKE)
     Route: 048
     Dates: end: 20250808
  3. MIDAZOLAM HYDROCHLORIDE [Suspect]
     Active Substance: MIDAZOLAM HYDROCHLORIDE
     Indication: Aggression
     Route: 058
     Dates: start: 20250808, end: 20250808
  4. OXYCODONE HYDROCHLORIDE [Suspect]
     Active Substance: OXYCODONE HYDROCHLORIDE
     Indication: Pain
     Dosage: 5 MILLIGRAM, ONCE A DAY (LONG TERM)
     Route: 048
     Dates: end: 20250808
  5. OXAZEPAM [Suspect]
     Active Substance: OXAZEPAM
     Indication: Behaviour disorder
     Dosage: 10 MILLIGRAM, ONCE A DAY (LONG-TERM INTAKE)
     Route: 048
     Dates: end: 20250808
  6. LOXAPINE [Suspect]
     Active Substance: LOXAPINE
     Indication: Behaviour disorder
     Dosage: 10 MILLIGRAM, ONCE A DAY (LONG-TERM INTAKE)
     Route: 048
     Dates: end: 20250808

REACTIONS (2)
  - Pneumonia aspiration [Recovered/Resolved]
  - Somnolence [Recovered/Resolved]

NARRATIVE: CASE EVENT DATE: 20250808
